FAERS Safety Report 6689988-6 (Version None)
Quarter: 2010Q2

REPORT INFORMATION
  Report Type: 
  Country: None (occurrence: None)
  Receive Date: 20100421
  Receipt Date: 20100408
  Transmission Date: 20101027
  Serious: Yes (Other)
  Sender: FDA-Public Use
  Company Number: PHHY2010DK22315

PATIENT
  Sex: Male
  Weight: 96 kg

DRUGS (1)
  1. RASILEZ [Suspect]
     Indication: HYPERTENSION
     Route: 048
     Dates: start: 20090801, end: 20090824

REACTIONS (2)
  - FLUID RETENTION [None]
  - GRAVITATIONAL OEDEMA [None]
